FAERS Safety Report 9375618 (Version 1)
Quarter: 2013Q2

REPORT INFORMATION
  Report Type: Spontaneous
  Country: BR (occurrence: BR)
  Receive Date: 20130628
  Receipt Date: 20130628
  Transmission Date: 20140414
  Serious: Yes (Other)
  Sender: FDA-Public Use
  Company Number: BR-ASTRAZENECA-2013SE48648

PATIENT
  Age: 28794 Day
  Sex: Male
  Weight: 75 kg

DRUGS (5)
  1. CASODEX [Suspect]
     Indication: PROSTATE CANCER
     Route: 048
     Dates: start: 2001, end: 201302
  2. CASODEX [Suspect]
     Indication: PROSTATE CANCER
     Dosage: GENERIC DAILY
     Route: 048
     Dates: start: 201302
  3. ZOLADEX [Suspect]
     Indication: PROSTATE CANCER
     Route: 058
     Dates: start: 2001
  4. GLIMEPIRIDE [Concomitant]
     Indication: DIABETES MELLITUS
  5. PAROXETINE HYDROCHLORIDE [Concomitant]
     Indication: ANXIETY
     Dates: start: 2003

REACTIONS (4)
  - Diabetes mellitus [Recovered/Resolved]
  - Malignant neoplasm progression [Not Recovered/Not Resolved]
  - Therapeutic response unexpected with drug substitution [Unknown]
  - Anxiety [Recovered/Resolved]
